FAERS Safety Report 8271748 (Version 3)
Quarter: 2013Q2

REPORT INFORMATION
  Report Type: Spontaneous
  Country: US (occurrence: None)
  Receive Date: 20111122
  Receipt Date: 20120426
  Transmission Date: 20140414
  Serious: No
  Sender: FDA-Public Use
  Company Number: PHHY2011US63195

PATIENT
  Age: 45 Year
  Sex: Female

DRUGS (4)
  1. GILENYA [Suspect]
     Indication: MULTIPLE SCLEROSIS
     Dosage: 0.5 MG, QD, ORAL
     Route: 048
     Dates: start: 20101228
  2. VITAMIN D (ERGOCALCIFEROL) [Concomitant]
  3. LEXAPRO (ESCITALOPRAM OXALATE) [Concomitant]
  4. OXYBUTYNIN HCL [Suspect]
     Route: 050

REACTIONS (6)
  - Lacrimation increased [None]
  - VISION BLURRED [None]
  - HEADACHE [None]
  - Eyelid margin crusting [None]
  - Ocular discomfort [None]
  - Eye pain [None]
